FAERS Safety Report 16468520 (Version 3)
Quarter: 2019Q4

REPORT INFORMATION
  Report Type: Spontaneous
  Country: CA (occurrence: CA)
  Receive Date: 20190624
  Receipt Date: 20191125
  Transmission Date: 20200122
  Serious: Yes (Hospitalization)
  Sender: FDA-Public Use
  Company Number: CA-PFIZER INC-2019261019

PATIENT
  Age: 64 Year
  Sex: Female

DRUGS (5)
  1. GRASTOFIL [Concomitant]
     Active Substance: FILGRASTIM
     Dosage: 0.5 ML, WEEKLY
  2. COUMADIN [Concomitant]
     Active Substance: WARFARIN SODIUM
     Dosage: UNK
  3. METHOTREXATE. [Concomitant]
     Active Substance: METHOTREXATE
     Indication: RHEUMATOID ARTHRITIS
     Dosage: UNK
     Route: 065
  4. ARAVA [Concomitant]
     Active Substance: LEFLUNOMIDE
     Indication: RHEUMATOID ARTHRITIS
     Dosage: UNK
     Route: 065
  5. XELJANZ [Suspect]
     Active Substance: TOFACITINIB CITRATE
     Indication: RHEUMATOID ARTHRITIS
     Dosage: 5 MG, 2X/DAY
     Route: 048
     Dates: start: 20190611, end: 201909

REACTIONS (4)
  - Musculoskeletal pain [Unknown]
  - Neuromuscular pain [Unknown]
  - Blood test abnormal [Unknown]
  - Chest pain [Unknown]
